FAERS Safety Report 17045446 (Version 6)
Quarter: 2020Q2

REPORT INFORMATION
  Report Type: Report from Study
  Country: US (occurrence: US)
  Receive Date: 20191118
  Receipt Date: 20200420
  Transmission Date: 20200713
  Serious: Yes (Death, Hospitalization)
  Sender: FDA-Public Use
  Company Number: US-ACTELION-A-US2019-198224

PATIENT
  Sex: Male
  Weight: 84.81 kg

DRUGS (11)
  1. ESBRIET [Concomitant]
     Active Substance: PIRFENIDONE
  2. UPTRAVI [Suspect]
     Active Substance: SELEXIPAG
     Indication: PULMONARY ARTERIAL HYPERTENSION
     Dosage: 800 MCG, BID
     Route: 048
  3. LETAIRIS [Concomitant]
     Active Substance: AMBRISENTAN
  4. ELIQUIS [Concomitant]
     Active Substance: APIXABAN
  5. RIFAXIMIN. [Concomitant]
     Active Substance: RIFAXIMIN
  6. ADCIRCA [Concomitant]
     Active Substance: TADALAFIL
  7. SILDENAFIL CITRATE. [Concomitant]
     Active Substance: SILDENAFIL CITRATE
  8. UPTRAVI [Suspect]
     Active Substance: SELEXIPAG
     Dosage: 1200 MCG, BID
     Route: 048
     Dates: end: 20200101
  9. OFEV [Concomitant]
     Active Substance: NINTEDANIB
  10. AMBRISENTAN [Concomitant]
     Active Substance: AMBRISENTAN
  11. NEURONTIN [Concomitant]
     Active Substance: GABAPENTIN

REACTIONS (11)
  - Peritonitis [Fatal]
  - Feeding tube user [Unknown]
  - Sepsis [Fatal]
  - Pneumonia [Recovering/Resolving]
  - Pulmonary fibrosis [Unknown]
  - Dyspnoea [Recovering/Resolving]
  - Product dose omission [Unknown]
  - Mechanical ventilation [Unknown]
  - Clostridium difficile infection [Unknown]
  - Hospitalisation [Unknown]
  - Gastroenteritis viral [Unknown]
